FAERS Safety Report 9971028 (Version 1)
Quarter: 2014Q1

REPORT INFORMATION
  Report Type: Report from Study
  Country: US (occurrence: US)
  Receive Date: 20140306
  Receipt Date: 20140306
  Transmission Date: 20141002
  Serious: No
  Sender: FDA-Public Use
  Company Number: US-ABBVIE-13P-163-1149430-00

PATIENT
  Age: 20 Year
  Sex: Male

DRUGS (3)
  1. HUMIRA [Suspect]
     Indication: CROHN^S DISEASE
     Dosage: 4-40MG INJECTIONS
     Dates: start: 20130819, end: 20130819
  2. HUMIRA [Suspect]
     Dosage: 2-40MG INJECTIONS
     Dates: start: 20130903, end: 20130903
  3. HUMIRA [Suspect]
     Dates: start: 20130917

REACTIONS (1)
  - Inappropriate schedule of drug administration [Recovered/Resolved]
